FAERS Safety Report 13516022 (Version 1)
Quarter: 2017Q2

REPORT INFORMATION
  Report Type: Spontaneous
  Country: GB (occurrence: GB)
  Receive Date: 20170505
  Receipt Date: 20170505
  Transmission Date: 20170830
  Serious: Yes (Other)
  Sender: FDA-Public Use
  Company Number: GB-JNJFOC-20170428053

PATIENT
  Age: 48 Year
  Sex: Female
  Weight: 79.82 kg

DRUGS (2)
  1. CETIRIZINE HYDROCHLORIDE. [Suspect]
     Active Substance: CETIRIZINE HYDROCHLORIDE
     Route: 065
  2. CETIRIZINE HYDROCHLORIDE. [Suspect]
     Active Substance: CETIRIZINE HYDROCHLORIDE
     Indication: SEASONAL ALLERGY
     Dosage: DOSE: 10 (UNIT NOT REPORTED), ONCE A DAY, CUMULATIVE DOSE: 70 (UNIT NOT REPORTED)
     Route: 065
     Dates: start: 20170216, end: 20170223

REACTIONS (3)
  - Feeling abnormal [Unknown]
  - Hallucination [Recovered/Resolved]
  - Disorientation [Recovered/Resolved]

NARRATIVE: CASE EVENT DATE: 20170223
